FAERS Safety Report 12313123 (Version 1)
Quarter: 2016Q2

REPORT INFORMATION
  Report Type: Spontaneous
  Country: US (occurrence: US)
  Receive Date: 20160428
  Receipt Date: 20160428
  Transmission Date: 20160815
  Serious: Yes (Hospitalization, Other)
  Sender: FDA-Public Use
  Company Number: US-ROCHE-1749038

PATIENT
  Sex: Male

DRUGS (1)
  1. CELLCEPT [Suspect]
     Active Substance: MYCOPHENOLATE MOFETIL\MYCOPHENOLATE MOFETIL HYDROCHLORIDE
     Indication: MUSCULAR WEAKNESS
     Dosage: 1 DAY DAYS
     Route: 065

REACTIONS (8)
  - Skin bacterial infection [Unknown]
  - Dehydration [Unknown]
  - Infection [Unknown]
  - White blood cell count abnormal [Unknown]
  - Renal failure [Unknown]
  - Dizziness [Unknown]
  - Red blood cell count abnormal [Unknown]
  - Blood glucose decreased [Unknown]

NARRATIVE: CASE EVENT DATE: 201601
